FAERS Safety Report 8354042-4 (Version None)
Quarter: 2012Q2

REPORT INFORMATION
  Report Type: 
  Country: None (occurrence: None)
  Receive Date: 20120511
  Receipt Date: 20120508
  Transmission Date: 20120825
  Serious: Yes (Hospitalization, Other)
  Sender: FDA-Public Use
  Company Number: US-PFIZER INC-2010000133

PATIENT
  Sex: Female
  Weight: 82.54 kg

DRUGS (12)
  1. QUINAPRIL HCL [Suspect]
     Indication: MYOCARDIAL INFARCTION
  2. ESTRADIOL [Concomitant]
     Dosage: UNK
  3. PLAVIX [Concomitant]
     Dosage: 75 MG, UNK
     Dates: start: 20100101
  4. ACETYLSALICYLIC ACID [Concomitant]
     Dosage: 81 MG, UNK
  5. PROVERA [Concomitant]
     Dosage: 5 MG, UNK
  6. COVERA-HS [Concomitant]
     Dosage: 180 MG, UNK
  7. XANAX [Concomitant]
     Dosage: 0.25 MG, AS NEEDED
  8. LOPRESSOR [Suspect]
     Indication: HYPERTENSION
     Dosage: 25 MG, 2X/DAY
     Dates: start: 20090801
  9. ALPRAZOLAM [Concomitant]
     Dosage: UNK
  10. SIMVASTATIN [Concomitant]
     Dosage: UNK
     Dates: start: 20090801
  11. QUINAPRIL HCL [Suspect]
     Indication: CORONARY ARTERY DISEASE
     Dosage: 10 MG, DAILY
     Route: 048
     Dates: start: 20090731, end: 20091215
  12. ZETIA [Concomitant]
     Dosage: UNK
     Dates: start: 20090801, end: 20090801

REACTIONS (24)
  - CORONARY ARTERIAL STENT INSERTION [None]
  - MUSCULAR WEAKNESS [None]
  - WEIGHT DECREASED [None]
  - EYE SWELLING [None]
  - NAUSEA [None]
  - LIP SWELLING [None]
  - FEELING ABNORMAL [None]
  - SWELLING FACE [None]
  - DECREASED APPETITE [None]
  - WEIGHT INCREASED [None]
  - PERIPHERAL NERVE INJURY [None]
  - HIGH DENSITY LIPOPROTEIN DECREASED [None]
  - TOTAL CHOLESTEROL/HDL RATIO DECREASED [None]
  - ASTHENIA [None]
  - APHAGIA [None]
  - FLUSHING [None]
  - RED BLOOD CELL COUNT INCREASED [None]
  - GAIT DISTURBANCE [None]
  - BLOOD MAGNESIUM INCREASED [None]
  - MALAISE [None]
  - DYSGEUSIA [None]
  - LOW DENSITY LIPOPROTEIN INCREASED [None]
  - HYPERHIDROSIS [None]
  - MYALGIA [None]
